FAERS Safety Report 6236376-2 (Version None)
Quarter: 2009Q2

REPORT INFORMATION
  Report Type: 
  Country: None (occurrence: None)
  Receive Date: 20090619
  Receipt Date: 20090612
  Transmission Date: 20091009
  Serious: Yes (Other)
  Sender: FDA-Public Use
  Company Number: FI-NAPPMUNDI-GBR-2009-0005232

PATIENT
  Sex: Female

DRUGS (3)
  1. OXYNORM 5 MG KAPSELI, KOVA [Suspect]
     Indication: PAIN
     Dosage: 5 MG, PRN
     Route: 048
     Dates: start: 20090612
  2. OXYCONTIN 40 MG DEPOTTABLETIT [Concomitant]
     Indication: DRUG USE FOR UNKNOWN INDICATION
     Dosage: 40 MG, BID
     Route: 048
  3. TOPIMAX                            /01201701/ [Concomitant]
     Indication: DRUG USE FOR UNKNOWN INDICATION
     Dosage: 25 MG, UNK

REACTIONS (2)
  - CHOKING SENSATION [None]
  - DYSPNOEA [None]
